FAERS Safety Report 5840389-X (Version None)
Quarter: 2008Q3

REPORT INFORMATION
  Report Type: 
  Country: None (occurrence: None)
  Receive Date: 20080807
  Receipt Date: 20080730
  Transmission Date: 20090109
  Serious: Yes (Other)
  Sender: FDA-Public Use
  Company Number: 163-21880-08071761

PATIENT
  Age: 91 Year
  Sex: Male
  Weight: 70.3075 kg

DRUGS (2)
  1. REVLIMID [Suspect]
     Indication: MYELODYSPLASTIC SYNDROME
     Dosage: 15 MG, 1 IN 1 D, ORAL; 5 MG, 1 IN 1 D, ORAL
     Route: 048
     Dates: start: 20080711, end: 20080701
  2. REVLIMID [Suspect]
     Indication: MYELODYSPLASTIC SYNDROME
     Dosage: 15 MG, 1 IN 1 D, ORAL; 5 MG, 1 IN 1 D, ORAL
     Route: 048
     Dates: start: 20080731

REACTIONS (1)
  - DERMATITIS [None]
